FAERS Safety Report 4744441-1 (Version None)
Quarter: 2005Q3

REPORT INFORMATION
  Report Type: 
  Country: None (occurrence: None)
  Receive Date: 20050811
  Receipt Date: 20050811
  Transmission Date: 20060218
  Serious: Yes (Hospitalization)
  Sender: FDA-Public Use
  Company Number: None

PATIENT
  Age: 72 Year
  Weight: 61 kg

DRUGS (12)
  1. DOCETAXEL [Suspect]
     Indication: LUNG NEOPLASM MALIGNANT
     Dosage: 49 MG IV
     Route: 042
     Dates: start: 20050803
  2. GLEEVEC [Suspect]
     Indication: LUNG NEOPLASM MALIGNANT
     Dosage: 600 MG /D PO
     Route: 048
     Dates: start: 20050808
  3. LIPITOR [Concomitant]
  4. SYNTHROID [Concomitant]
  5. HUMALOG [Concomitant]
  6. LANTUS [Concomitant]
  7. METOPROLOL [Concomitant]
  8. ASPIRIN [Concomitant]
  9. TYLENOL (CAPLET) [Concomitant]
  10. VICODIN [Concomitant]
  11. CALCIUM SUPP [Concomitant]
  12. MULTIVIT [Concomitant]

REACTIONS (6)
  - COLLAPSE OF LUNG [None]
  - DIARRHOEA [None]
  - DYSPNOEA [None]
  - NAUSEA [None]
  - PLEURAL EFFUSION [None]
  - VOMITING [None]
